FAERS Safety Report 5312187-7 (Version None)
Quarter: 2007Q2

REPORT INFORMATION
  Report Type: 
  Country: None (occurrence: None)
  Receive Date: 20070430
  Receipt Date: 20060922
  Transmission Date: 20071010
  Serious: No
  Sender: FDA-Public Use
  Company Number: 2006UW18616

PATIENT
  Age: 61 Year
  Sex: Female
  Weight: 83.9 kg

DRUGS (4)
  1. NEXIUM [Suspect]
     Indication: GASTROOESOPHAGEAL REFLUX DISEASE
     Route: 048
     Dates: start: 20060918
  2. TOPROL-XL [Concomitant]
  3. LIPITOR [Concomitant]
  4. FOSAMAX [Concomitant]

REACTIONS (1)
  - THROAT IRRITATION [None]
